FAERS Safety Report 13754286 (Version 1)
Quarter: 2017Q3

REPORT INFORMATION
  Report Type: Spontaneous
  Country: US (occurrence: US)
  Receive Date: 20170714
  Receipt Date: 20170714
  Transmission Date: 20171127
  Serious: No
  Sender: FDA-Public Use
  Company Number: US-BIOGEN-2017BI00428941

PATIENT
  Age: 32 Year
  Sex: Female

DRUGS (1)
  1. ZINBRYTA [Suspect]
     Active Substance: DACLIZUMAB
     Indication: RELAPSING-REMITTING MULTIPLE SCLEROSIS
     Route: 065

REACTIONS (7)
  - Influenza [Unknown]
  - Multiple sclerosis relapse [Unknown]
  - Back pain [Unknown]
  - Frustration tolerance decreased [Unknown]
  - Pyrexia [Unknown]
  - Malaise [Unknown]
  - Upper respiratory tract infection [Unknown]
